FAERS Safety Report 19088759 (Version 1)
Quarter: 2021Q2

REPORT INFORMATION
  Report Type: Spontaneous
  Country: MY (occurrence: MY)
  Receive Date: 20210403
  Receipt Date: 20210403
  Transmission Date: 20210717
  Serious: No
  Sender: FDA-Public Use
  Company Number: MY-LUPIN PHARMACEUTICALS INC.-2021-03993

PATIENT
  Age: 35 Year
  Sex: Female

DRUGS (8)
  1. AMPHOTERICIN B. [Suspect]
     Active Substance: AMPHOTERICIN B
     Indication: EYE DISORDER
  2. AMPHOTERICIN B. [Suspect]
     Active Substance: AMPHOTERICIN B
     Indication: SPOROTRICHOSIS
     Dosage: 5 MILLIGRAM, SINGLE
     Route: 026
  3. FLUCONAZOLE. [Suspect]
     Active Substance: FLUCONAZOLE
     Indication: SPOROTRICHOSIS
     Dosage: UNK?EYE DROPS (2?HOURLY)
     Route: 047
  4. CHLORAMPHENICOL [Suspect]
     Active Substance: CHLORAMPHENICOL
     Indication: CONJUNCTIVITIS BACTERIAL
     Dosage: UNK?EYE DROPS
     Route: 065
  5. EMTRICITABINE/TENOFOVIR [Suspect]
     Active Substance: EMTRICITABINE\TENOFOVIR
     Indication: RETROVIRAL INFECTION
     Dosage: UNK
     Route: 065
  6. FLUCONAZOLE. [Suspect]
     Active Substance: FLUCONAZOLE
     Indication: EYE DISORDER
     Dosage: UNK?EYE DROPS (4?HOURLY)
     Route: 047
  7. ABACAVIR AND LAMIVUDINE [Suspect]
     Active Substance: ABACAVIR SULFATE\LAMIVUDINE
     Indication: RETROVIRAL INFECTION
     Dosage: UNK
     Route: 065
  8. CHLORAMPHENICOL [Suspect]
     Active Substance: CHLORAMPHENICOL
     Dosage: UNK?OINTMENT
     Route: 065

REACTIONS (2)
  - Normal newborn [Unknown]
  - Exposure during pregnancy [Unknown]
